FAERS Safety Report 8514662-0 (Version None)
Quarter: 2012Q3

REPORT INFORMATION
  Report Type: 
  Country: None (occurrence: None)
  Receive Date: 20120712
  Receipt Date: 20120712
  Transmission Date: 20120928
  Serious: No
  Sender: FDA-Public Use
  Company Number: None

PATIENT
  Age: 76 Year
  Sex: Female

DRUGS (8)
  1. AMANTADINE HCL [Concomitant]
  2. NITROFURANTOIN [Concomitant]
  3. AMPYRA [Suspect]
     Indication: MULTIPLE SCLEROSIS
     Dosage: 10MG Q12H ORALLY
     Route: 048
  4. COPAXONE [Concomitant]
  5. AMANTADINE HCL [Concomitant]
  6. TRAMADOL HYDROCHLORIDE [Concomitant]
  7. LIPITOR [Concomitant]
  8. GABAPENTIN [Concomitant]

REACTIONS (1)
  - SENSATION OF HEAVINESS [None]
